FAERS Safety Report 5130651-0 (Version None)
Quarter: 2006Q4

REPORT INFORMATION
  Report Type: 
  Country: None (occurrence: None)
  Receive Date: 20061018
  Receipt Date: 20061018
  Transmission Date: 20070319
  Serious: Yes (Hospitalization, Disabling)
  Sender: FDA-Public Use
  Company Number: None

PATIENT
  Sex: Female
  Weight: 94 kg

DRUGS (3)
  1. ALEFACEPT  15MG  BIOGEN IDEC [Suspect]
     Indication: PSORIASIS
     Dosage: 30MG  QWK X 14  IM
     Route: 030
     Dates: start: 20050803, end: 20051102
  2. ALEFACEPT  15MG  BIOGEN IDEC [Suspect]
  3. ALEFACEPT 15MG BIOGEN IDEC [Suspect]
     Dosage: 15MG  QWK X 1  IM
     Route: 030
     Dates: start: 20050727

REACTIONS (6)
  - AMPUTATION REVISION [None]
  - HYPOTENSION [None]
  - LIMB INJURY [None]
  - LIMB TRAUMATIC AMPUTATION [None]
  - PYREXIA [None]
  - TACHYCARDIA [None]
